FAERS Safety Report 7322876-0 (Version None)
Quarter: 2011Q1

REPORT INFORMATION
  Report Type: 
  Country: None (occurrence: None)
  Receive Date: 20110301
  Receipt Date: 20110221
  Transmission Date: 20110831
  Serious: No
  Sender: FDA-Public Use
  Company Number: JP-JNJFOC-20110207432

PATIENT
  Age: 32 Year
  Sex: Male

DRUGS (4)
  1. TRYPTANOL [Concomitant]
  2. DUROTEP MT [Suspect]
     Indication: DIABETIC NEUROPATHY
     Route: 062
  3. CALONAL [Concomitant]
  4. LYRICA [Concomitant]
     Route: 048

REACTIONS (1)
  - DRUG PRESCRIBING ERROR [None]
